FAERS Safety Report 15643050 (Version 1)
Quarter: 2018Q4

REPORT INFORMATION
  Report Type: Spontaneous
  Country: CN (occurrence: CN)
  Receive Date: 20181121
  Receipt Date: 20181121
  Transmission Date: 20190205
  Serious: Yes (Other)
  Sender: FDA-Public Use
  Company Number: CN-ROCHE-2217521

PATIENT
  Age: 54 Year
  Sex: Female

DRUGS (3)
  1. ENTECAVIR. [Suspect]
     Active Substance: ENTECAVIR
     Indication: HEPATITIS B REACTIVATION
     Route: 065
     Dates: start: 2016
  2. PEGASYS [Suspect]
     Active Substance: PEGINTERFERON ALFA-2A
     Indication: HEPATITIS B REACTIVATION
     Dosage: DF=U
     Route: 058
     Dates: start: 20141225
  3. PEGASYS [Suspect]
     Active Substance: PEGINTERFERON ALFA-2A
     Indication: CHRONIC HEPATITIS B
     Dosage: DF=U
     Route: 058
     Dates: start: 201605

REACTIONS (2)
  - Hepatitis B reactivation [Unknown]
  - Drug ineffective [Unknown]

NARRATIVE: CASE EVENT DATE: 2016
